FAERS Safety Report 7997965-8 (Version None)
Quarter: 2011Q4

REPORT INFORMATION
  Report Type: 
  Country: None (occurrence: None)
  Receive Date: 20111221
  Receipt Date: 20111216
  Transmission Date: 20120403
  Serious: Yes (Life-Threatening, Other)
  Sender: FDA-Public Use
  Company Number: PHHY2010JP82178

PATIENT
  Sex: Female

DRUGS (42)
  1. CLOZARIL [Suspect]
     Dosage: 150 MG, UNK
     Route: 048
     Dates: start: 20100812, end: 20100814
  2. BROMPERIDOL [Concomitant]
     Dosage: 2 MG, UNK
     Route: 048
  3. LEVOMEPROMAZINE MALEATE [Concomitant]
     Dosage: 25 MG, UNK
     Route: 048
  4. MAGMITT [Concomitant]
     Indication: SCHIZOPHRENIA
     Dosage: 990 MG, UNK
     Route: 048
     Dates: start: 20100806
  5. CLOZARIL [Suspect]
     Dosage: UNK UKN, UNK
     Route: 048
     Dates: start: 20100805, end: 20100806
  6. CLOZARIL [Suspect]
     Dosage: UNK UKN, UNK
     Route: 048
     Dates: start: 20100807, end: 20100808
  7. ALMARL [Concomitant]
     Indication: SCHIZOPHRENIA
     Dosage: 20 MG, UNK
     Route: 048
  8. DEPAKENE [Concomitant]
     Dosage: 800 MG, UNK
     Route: 048
  9. CLOZARIL [Suspect]
     Dosage: 25 MG DAILY
     Route: 048
     Dates: start: 20100729, end: 20100729
  10. CLOZARIL [Suspect]
     Dosage: 50 MG, UNK
     Route: 048
     Dates: start: 20100730, end: 20100801
  11. CLOZARIL [Suspect]
     Dosage: UNK UKN, UNK
     Route: 048
     Dates: start: 20100809, end: 20100811
  12. LEVOMEPROMAZINE MALEATE [Concomitant]
     Dosage: 10 MG, UNK
     Route: 048
     Dates: start: 20100729
  13. OLANZAPINE [Concomitant]
     Dosage: 15 MG, UNK
     Route: 048
  14. SILECE [Concomitant]
     Dosage: 4 MG, UNK
     Route: 048
  15. DEPAKENE [Concomitant]
     Indication: SCHIZOPHRENIA
     Dosage: 400 MG, UNK
     Route: 048
     Dates: start: 20100917
  16. RISPERIDONE [Concomitant]
     Dosage: 6 MG, UNK
     Route: 048
  17. SILECE [Concomitant]
     Dosage: 3 MG, UNK
     Route: 048
  18. CLOZARIL [Suspect]
     Dosage: UNK UKN, UNK
     Route: 048
     Dates: start: 20100818, end: 20100820
  19. TIMIPERONE [Concomitant]
     Dosage: UNK UKN, UNK
     Route: 048
  20. BLONANSERIN [Concomitant]
     Dosage: UNK UKN, UNK
  21. LEVOMEPROMAZINE MALEATE [Concomitant]
     Dosage: 5 MG, UNK
     Route: 048
  22. OLANZAPINE [Concomitant]
     Dosage: 10 MG, UNK
     Route: 048
  23. CLOZARIL [Suspect]
     Indication: SCHIZOPHRENIA
     Dosage: 12.5 MG, UNK
  24. LEVOMEPROMAZINE MALEATE [Concomitant]
     Dosage: 10 MG, UNK
     Route: 048
     Dates: end: 20101006
  25. LEXOTAN [Concomitant]
     Indication: SCHIZOPHRENIA
     Dosage: 6 MG, UNK
     Route: 048
  26. AKINETON [Concomitant]
     Dosage: 2 MG, UNK
     Route: 048
  27. CLOZARIL [Suspect]
     Dosage: UNK UKN, UNK
     Route: 048
     Dates: start: 20100802, end: 20100804
  28. CLOZARIL [Suspect]
     Dosage: UNK UKN, UNK
     Route: 048
     Dates: start: 20100815, end: 20100817
  29. PURSENNIDE [Concomitant]
     Indication: SCHIZOPHRENIA
     Dosage: 12 MG, UNK
     Route: 048
     Dates: start: 20100809
  30. PEROSPIRONE HYDROCHLORIDE [Concomitant]
     Dosage: UNK UKN, UNK
     Route: 048
  31. QUETIAPINE FUMARATE [Concomitant]
     Dosage: UNK UKN, UNK
     Route: 048
  32. LEVOMEPROMAZINE MALEATE [Concomitant]
     Dosage: 15 MG, UNK
     Route: 048
  33. AKINETON [Concomitant]
     Indication: SCHIZOPHRENIA
     Dosage: 3 MG, UNK
     Route: 048
  34. MEILAX [Concomitant]
     Dosage: 2 MG, UNK
     Route: 048
  35. SILECE [Concomitant]
     Indication: SCHIZOPHRENIA
     Dosage: 2 MG, UNK
     Route: 048
  36. CLOZARIL [Suspect]
     Dosage: UNK UKN, UNK
     Route: 048
     Dates: start: 20100910, end: 20100914
  37. PERPHENAZINE [Concomitant]
     Dosage: 4 MG, UNK
     Route: 048
  38. ARIPIPRAZOLE [Concomitant]
     Dosage: 24 MG, UNK
  39. OLANZAPINE [Concomitant]
     Dosage: 20 MG, UNK
     Route: 048
  40. AKINETON [Concomitant]
     Dosage: 4 MG, UNK
     Route: 048
  41. MEILAX [Concomitant]
     Indication: SCHIZOPHRENIA
     Dosage: 4 MG, UNK
     Route: 048
     Dates: start: 20100814
  42. MAGMITT [Concomitant]
     Dosage: 1500 MG, UNK
     Route: 048

REACTIONS (14)
  - WHITE BLOOD CELL COUNT DECREASED [None]
  - PLEURISY [None]
  - ATELECTASIS [None]
  - ANGER [None]
  - IRRITABILITY [None]
  - C-REACTIVE PROTEIN INCREASED [None]
  - THIRST [None]
  - NEUTROPHIL COUNT DECREASED [None]
  - AGGRESSION [None]
  - PYREXIA [None]
  - PLATELET COUNT DECREASED [None]
  - AGITATION [None]
  - PLEURAL EFFUSION [None]
  - HEPATIC FUNCTION ABNORMAL [None]
